FAERS Safety Report 9240620 (Version 1)
Quarter: 2013Q2

REPORT INFORMATION
  Report Type: Spontaneous
  Country: US (occurrence: US)
  Receive Date: 20130418
  Receipt Date: 20130418
  Transmission Date: 20140414
  Serious: Yes (Other)
  Sender: FDA-Public Use
  Company Number: US-PFIZER INC-2013121750

PATIENT
  Age: 65 Year
  Sex: Female
  Weight: 133.33 kg

DRUGS (17)
  1. LYRICA [Suspect]
     Indication: DIABETIC NEUROPATHY
     Dosage: 75 MG, 2X/DAY
     Route: 048
     Dates: start: 2012, end: 2012
  2. LYRICA [Suspect]
     Indication: DIABETIC NEUROPATHY
     Dosage: 100 MG, 2X/DAY
     Route: 048
     Dates: start: 2012
  3. AMLODIPINE [Concomitant]
     Dosage: UNK
  4. GLIPIZIDE/METFORMIN [Concomitant]
     Dosage: 5/500 MG, UNK
  5. MIRAPEX [Concomitant]
     Dosage: UNK
  6. PLAVIX [Concomitant]
     Dosage: UNK
  7. LASIX [Concomitant]
     Dosage: UNK
  8. ZOLPIDEM [Concomitant]
     Dosage: UNK
  9. ASPIRIN [Concomitant]
     Dosage: UNK
  10. HYDROCODONE W/ACETAMINOPHEN [Concomitant]
     Dosage: UNK
  11. LOSARTAN [Concomitant]
     Dosage: UNK
  12. SIMVASTATIN [Concomitant]
     Dosage: UNK
  13. FENOFIBRATE [Concomitant]
     Dosage: UNK
  14. ZETIA [Concomitant]
     Dosage: UNK
  15. CIPROFLOXACIN [Concomitant]
     Dosage: UNK
  16. JANUVIA [Concomitant]
     Dosage: UNK
  17. TRADJENTA [Concomitant]
     Dosage: UNK

REACTIONS (3)
  - Arthropathy [Unknown]
  - Drug effect incomplete [Unknown]
  - Diabetic neuropathy [Unknown]
